FAERS Safety Report 19743713 (Version 1)
Quarter: 2021Q3

REPORT INFORMATION
  Report Type: Spontaneous
  Country: US (occurrence: US)
  Receive Date: 20210823
  Receipt Date: 20210823
  Transmission Date: 20211014
  Serious: No
  Sender: FDA-Public Use
  Company Number: None

PATIENT
  Sex: Female

DRUGS (1)
  1. STIVARGA [Suspect]
     Active Substance: REGORAFENIB
     Indication: COLON CANCER
     Dosage: ?          OTHER FREQUENCY:SEE EVENT;TAKE 4 TABLETS BY MOUTH DAILY ON DAYS 1?21, FOLLWED BY 7 DAYS OFF?
     Route: 048
     Dates: start: 202106, end: 202108

REACTIONS (4)
  - Malignant neoplasm progression [None]
  - Sepsis [None]
  - Decubitus ulcer [None]
  - Pneumonia [None]
